FAERS Safety Report 9228772 (Version 2)
Quarter: 2013Q2

REPORT INFORMATION
  Report Type: Report from Study
  Country: GB (occurrence: GB)
  Receive Date: 20130412
  Receipt Date: 20130418
  Transmission Date: 20140414
  Serious: Yes (Death)
  Sender: FDA-Public Use
  Company Number: GB-ROCHE-1212565

PATIENT
  Age: 52 Year
  Sex: Female

DRUGS (3)
  1. PERTUZUMAB [Suspect]
     Indication: BREAST CANCER
     Route: 042
     Dates: start: 20130226
  2. PERTUZUMAB [Suspect]
     Dosage: LAST DOSE PRIOR TO SAE: 19/MAR/2013. PERMANENTLY DISCONTINUED ON 04/APR/2013 DUE TO SAE.
     Route: 042
     Dates: end: 20130319
  3. DOCETAXEL [Suspect]
     Indication: BREAST CANCER
     Route: 065

REACTIONS (1)
  - Sepsis [Fatal]
